FAERS Safety Report 4585880-1 (Version None)
Quarter: 2005Q1

REPORT INFORMATION
  Report Type: 
  Country: None (occurrence: None)
  Receive Date: 20050217
  Receipt Date: 20050128
  Transmission Date: 20050727
  Serious: Yes (Death)
  Sender: FDA-Public Use
  Company Number: AU-GLAXOSMITHKLINE-B0370623A

PATIENT
  Age: 57 Year
  Sex: Female
  Weight: 60 kg

DRUGS (4)
  1. IMIGRAN [Suspect]
     Indication: MIGRAINE
     Dosage: 1TAB AS REQUIRED
     Route: 048
  2. DESERIL [Suspect]
     Indication: MIGRAINE
     Dosage: 1MG PER DAY
     Route: 048
     Dates: start: 19890501
  3. PREMARIN [Suspect]
     Indication: MENOPAUSAL SYMPTOMS
     Dosage: 300MCG PER DAY
     Route: 048
     Dates: start: 19900101
  4. CALTRATE [Suspect]
     Indication: OSTEOPOROSIS
     Dosage: 600MG PER DAY
     Route: 048

REACTIONS (4)
  - CHEST PAIN [None]
  - CORONARY ARTERY ATHEROSCLEROSIS [None]
  - SUDDEN DEATH [None]
  - VOMITING [None]
